FAERS Safety Report 7776650-1 (Version None)
Quarter: 2011Q3

REPORT INFORMATION
  Report Type: 
  Country: None (occurrence: None)
  Receive Date: 20110926
  Receipt Date: 20110921
  Transmission Date: 20111222
  Serious: Yes (Hospitalization)
  Sender: FDA-Public Use
  Company Number: US-B.I. PHARMACEUTICALS,INC./RIDGEFIELD-2011-BP-22630BP

PATIENT
  Sex: Female

DRUGS (18)
  1. BUPROPION [Concomitant]
     Indication: DEPRESSION
     Dosage: 75 MG
  2. ESTRADIOL [Concomitant]
     Indication: MENOPAUSE
     Dosage: 2 MG
  3. ESTRADIOL [Concomitant]
     Indication: HORMONE THERAPY
  4. SIMVASTATIN [Concomitant]
     Indication: BLOOD CHOLESTEROL INCREASED
  5. SINGULAIR [Concomitant]
     Indication: MULTIPLE ALLERGIES
  6. SPIRIVA [Suspect]
     Indication: CHRONIC OBSTRUCTIVE PULMONARY DISEASE
     Dosage: 18 MCG
     Route: 055
     Dates: start: 20110820
  7. SINGULAIR [Concomitant]
     Indication: CHRONIC OBSTRUCTIVE PULMONARY DISEASE
  8. CETIRIZINE HCL [Concomitant]
     Indication: MULTIPLE ALLERGIES
     Dosage: 10 MG
  9. SYMBICORT [Concomitant]
     Indication: CHRONIC OBSTRUCTIVE PULMONARY DISEASE
  10. PAROXETINE [Concomitant]
     Indication: DEPRESSION
     Dosage: 50 MG
  11. KLONAZEPAM [Concomitant]
     Indication: DEPRESSION
     Dosage: 3 MG
  12. VIT E [Concomitant]
     Indication: SUPPLEMENTATION THERAPY
     Dosage: 400 U
  13. CYCLOPHOSPHAMIDE [Concomitant]
     Indication: BACK DISORDER
     Dosage: 10 MG
  14. PROAIR HFA [Concomitant]
     Indication: CHRONIC OBSTRUCTIVE PULMONARY DISEASE
  15. RANITIDINE [Suspect]
     Indication: OESOPHAGITIS
     Dates: end: 20110901
  16. OMEPRAZOLE [Concomitant]
     Indication: OESOPHAGITIS
  17. NICOTINE [Concomitant]
     Indication: NICOTINE DEPENDENCE
  18. SALONPAS [Concomitant]
     Indication: BACK PAIN

REACTIONS (1)
  - BRONCHOSPASM [None]
